FAERS Safety Report 25506704 (Version 2)
Quarter: 2025Q3

REPORT INFORMATION
  Report Type: Report from Study
  Country: CA (occurrence: CA)
  Receive Date: 20250702
  Receipt Date: 20250711
  Transmission Date: 20251020
  Serious: Yes (Other)
  Sender: HLS THERAPEUTICS
  Company Number: CA-HLS-202501722

PATIENT
  Age: 35 Year
  Sex: Male

DRUGS (2)
  1. CLOZARIL [Suspect]
     Active Substance: CLOZAPINE
     Indication: Product used for unknown indication
     Route: 048
     Dates: start: 20250608
  2. CLOZARIL [Suspect]
     Active Substance: CLOZAPINE
     Indication: Product used for unknown indication
     Route: 048
     Dates: start: 20250611

REACTIONS (13)
  - Hypertension [Unknown]
  - Gastrointestinal hypomotility [Not Recovered/Not Resolved]
  - Constipation [Unknown]
  - Dizziness [Not Recovered/Not Resolved]
  - Dysarthria [Unknown]
  - Drooling [Not Recovered/Not Resolved]
  - Headache [Not Recovered/Not Resolved]
  - Increased appetite [Unknown]
  - Nausea [Recovering/Resolving]
  - Communication disorder [Unknown]
  - Tachycardia [Not Recovered/Not Resolved]
  - Abdominal pain upper [Unknown]
  - Vomiting [Not Recovered/Not Resolved]

NARRATIVE: CASE EVENT DATE: 20250624
